FAERS Safety Report 15474151 (Version 1)
Quarter: 2018Q4

REPORT INFORMATION
  Report Type: Spontaneous
  Country: ES (occurrence: ES)
  Receive Date: 20181008
  Receipt Date: 20181008
  Transmission Date: 20190205
  Serious: Yes (Other)
  Sender: FDA-Public Use
  Company Number: ES-SA-2018SA276420

PATIENT
  Age: 13 Year
  Sex: Male
  Weight: 73.5 kg

DRUGS (3)
  1. RASBURICASE [Suspect]
     Active Substance: RASBURICASE
     Indication: HYPERURICAEMIA
     Dosage: UNK
     Route: 042
     Dates: start: 20180817, end: 20180817
  2. RASBURICASE [Suspect]
     Active Substance: RASBURICASE
     Dosage: 0.1 ML/KG, QD
     Route: 042
     Dates: start: 20180820, end: 20180820
  3. METOTREXATO [METHOTREXATE] [Concomitant]
     Indication: ACUTE LYMPHOCYTIC LEUKAEMIA
     Route: 042
     Dates: start: 20180817, end: 20180817

REACTIONS (1)
  - Generalised erythema [Recovered/Resolved]

NARRATIVE: CASE EVENT DATE: 20180820
